FAERS Safety Report 7966155-7 (Version None)
Quarter: 2011Q4

REPORT INFORMATION
  Report Type: 
  Country: None (occurrence: None)
  Receive Date: 20111208
  Receipt Date: 20111205
  Transmission Date: 20120403
  Serious: No
  Sender: FDA-Public Use
  Company Number: US-PFIZER INC-2011284951

PATIENT
  Sex: Male
  Weight: 21.315 kg

DRUGS (1)
  1. CHILDREN'S ADVIL [Suspect]
     Indication: PYREXIA
     Dosage: UNK
     Route: 048
     Dates: start: 20111121, end: 20111121

REACTIONS (7)
  - MUSCULOSKELETAL CHEST PAIN [None]
  - RASH GENERALISED [None]
  - GAIT DISTURBANCE [None]
  - COUGH [None]
  - URTICARIA [None]
  - PAIN IN EXTREMITY [None]
  - VIRAL INFECTION [None]
